FAERS Safety Report 12328675 (Version 1)
Quarter: 2016Q2

REPORT INFORMATION
  Report Type: Spontaneous
  Country: US (occurrence: US)
  Receive Date: 20160503
  Receipt Date: 20160503
  Transmission Date: 20160815
  Serious: No
  Sender: FDA-Public Use
  Company Number: US-BEH-2015050094

PATIENT
  Age: 72 Year
  Sex: Female
  Weight: 54 kg

DRUGS (14)
  1. HIZENTRA [Suspect]
     Active Substance: HUMAN IMMUNOGLOBULIN G
     Indication: BRONCHIECTASIS
     Dosage: 2 GM 10 ML VIAL
     Route: 058
  2. HIZENTRA [Suspect]
     Active Substance: HUMAN IMMUNOGLOBULIN G
     Indication: IMMUNODEFICIENCY COMMON VARIABLE
     Dosage: 4 GM 20 ML VIAL
     Route: 058
  3. LIDOCAINE. [Concomitant]
     Active Substance: LIDOCAINE
  4. FISH OIL [Concomitant]
     Active Substance: FISH OIL
  5. HIZENTRA [Suspect]
     Active Substance: HUMAN IMMUNOGLOBULIN G
     Indication: HYPOGAMMAGLOBULINAEMIA
     Dosage: 2 GM 10 ML VIAL
     Route: 058
  6. HIZENTRA [Suspect]
     Active Substance: HUMAN IMMUNOGLOBULIN G
     Indication: HYPOGAMMAGLOBULINAEMIA
     Dosage: 2 GM 10 ML VIAL
     Route: 058
  7. HIZENTRA [Suspect]
     Active Substance: HUMAN IMMUNOGLOBULIN G
     Indication: PLASMA PROTEIN METABOLISM DISORDER
     Dosage: 2 GM 10 ML VIAL
     Route: 058
  8. EPIPEN [Concomitant]
     Active Substance: EPINEPHRINE
  9. BIOTIN [Concomitant]
     Active Substance: BIOTIN
  10. VITAMIN B-100 COMPLES TAB [Concomitant]
  11. PONARIS NASAL EMOLLIENT SOLUTION [Concomitant]
  12. CALCIUM CITRATE VIT D CAPLET [Concomitant]
  13. LECITHIN [Concomitant]
     Active Substance: LECITHIN
  14. DIPHENHYDRAMINE. [Concomitant]
     Active Substance: DIPHENHYDRAMINE

REACTIONS (1)
  - Infusion site pruritus [Recovered/Resolved]

NARRATIVE: CASE EVENT DATE: 20150326
